FAERS Safety Report 21015321 (Version 1)
Quarter: 2022Q2

REPORT INFORMATION
  Report Type: Spontaneous
  Country: US (occurrence: US)
  Receive Date: 20220628
  Receipt Date: 20220628
  Transmission Date: 20220720
  Serious: No
  Sender: FDA-Public Use
  Company Number: US-BRISTOL-MYERS SQUIBB COMPANY-2022-048274

PATIENT
  Age: 84 Year
  Sex: Male
  Weight: 61.8 kg

DRUGS (1)
  1. BREYANZI [Suspect]
     Active Substance: LISOCABTAGENE MARALEUCEL
     Indication: B-cell lymphoma
     Dosage: DOSE : UNAVAILABLE;     FREQ : UNAVAILABLE
     Dates: start: 20220317

REACTIONS (12)
  - Confusional state [Unknown]
  - Tremor [Unknown]
  - Memory impairment [Unknown]
  - Depression [Unknown]
  - Incontinence [Unknown]
  - Decreased appetite [Unknown]
  - Diarrhoea [Unknown]
  - Somnolence [Unknown]
  - Hypoalbuminaemia [Unknown]
  - Hypofibrinogenaemia [Unknown]
  - Fatigue [Unknown]
  - Pyrexia [Unknown]

NARRATIVE: CASE EVENT DATE: 20220319
